FAERS Safety Report 25468308 (Version 1)
Quarter: 2025Q2

REPORT INFORMATION
  Report Type: Report from Study
  Country: IN (occurrence: IN)
  Receive Date: 20250623
  Receipt Date: 20250623
  Transmission Date: 20250717
  Serious: Yes (Other)
  Sender: TAKEDA
  Company Number: IN-JNJFOC-20250618725

PATIENT
  Age: 47 Year
  Sex: Female
  Weight: 55 kg

DRUGS (74)
  1. BORTEZOMIB [Suspect]
     Active Substance: BORTEZOMIB
     Indication: Plasma cell myeloma refractory
  2. BORTEZOMIB [Suspect]
     Active Substance: BORTEZOMIB
     Dates: start: 20240124, end: 20240320
  3. BORTEZOMIB [Suspect]
     Active Substance: BORTEZOMIB
  4. BORTEZOMIB [Suspect]
     Active Substance: BORTEZOMIB
  5. BORTEZOMIB [Suspect]
     Active Substance: BORTEZOMIB
  6. BORTEZOMIB [Suspect]
     Active Substance: BORTEZOMIB
  7. BORTEZOMIB [Suspect]
     Active Substance: BORTEZOMIB
  8. BORTEZOMIB [Suspect]
     Active Substance: BORTEZOMIB
  9. BORTEZOMIB [Suspect]
     Active Substance: BORTEZOMIB
  10. BORTEZOMIB [Suspect]
     Active Substance: BORTEZOMIB
  11. BORTEZOMIB [Suspect]
     Active Substance: BORTEZOMIB
  12. BORTEZOMIB [Suspect]
     Active Substance: BORTEZOMIB
  13. BORTEZOMIB [Suspect]
     Active Substance: BORTEZOMIB
  14. BORTEZOMIB [Suspect]
     Active Substance: BORTEZOMIB
  15. BORTEZOMIB [Suspect]
     Active Substance: BORTEZOMIB
  16. BORTEZOMIB [Suspect]
     Active Substance: BORTEZOMIB
  17. BORTEZOMIB [Suspect]
     Active Substance: BORTEZOMIB
  18. BORTEZOMIB [Suspect]
     Active Substance: BORTEZOMIB
  19. BORTEZOMIB [Suspect]
     Active Substance: BORTEZOMIB
  20. BORTEZOMIB [Suspect]
     Active Substance: BORTEZOMIB
  21. DEXAMETHASONE [Suspect]
     Active Substance: DEXAMETHASONE
     Indication: Plasma cell myeloma refractory
  22. DEXAMETHASONE [Suspect]
     Active Substance: DEXAMETHASONE
  23. DEXAMETHASONE [Suspect]
     Active Substance: DEXAMETHASONE
  24. DEXAMETHASONE [Suspect]
     Active Substance: DEXAMETHASONE
  25. DEXAMETHASONE [Suspect]
     Active Substance: DEXAMETHASONE
  26. DEXAMETHASONE [Suspect]
     Active Substance: DEXAMETHASONE
  27. DEXAMETHASONE [Suspect]
     Active Substance: DEXAMETHASONE
  28. DEXAMETHASONE [Suspect]
     Active Substance: DEXAMETHASONE
  29. DEXAMETHASONE [Suspect]
     Active Substance: DEXAMETHASONE
  30. DEXAMETHASONE [Suspect]
     Active Substance: DEXAMETHASONE
  31. DEXAMETHASONE [Suspect]
     Active Substance: DEXAMETHASONE
  32. DARZALEX [Suspect]
     Active Substance: DARATUMUMAB
     Indication: Plasma cell myeloma refractory
     Dosage: 800 MILLIGRAM, 1/WEEK
     Dates: start: 20240126
  33. DARZALEX [Suspect]
     Active Substance: DARATUMUMAB
     Dates: start: 20240124, end: 20240320
  34. DARZALEX [Suspect]
     Active Substance: DARATUMUMAB
  35. DARZALEX [Suspect]
     Active Substance: DARATUMUMAB
  36. DARZALEX [Suspect]
     Active Substance: DARATUMUMAB
  37. DARZALEX [Suspect]
     Active Substance: DARATUMUMAB
  38. DARZALEX [Suspect]
     Active Substance: DARATUMUMAB
  39. DARZALEX [Suspect]
     Active Substance: DARATUMUMAB
  40. DARZALEX [Suspect]
     Active Substance: DARATUMUMAB
  41. DARZALEX [Suspect]
     Active Substance: DARATUMUMAB
  42. DARZALEX [Suspect]
     Active Substance: DARATUMUMAB
  43. DARZALEX [Suspect]
     Active Substance: DARATUMUMAB
  44. DARZALEX [Suspect]
     Active Substance: DARATUMUMAB
  45. DARZALEX [Suspect]
     Active Substance: DARATUMUMAB
  46. DARZALEX [Suspect]
     Active Substance: DARATUMUMAB
  47. DARZALEX [Suspect]
     Active Substance: DARATUMUMAB
  48. DARZALEX [Suspect]
     Active Substance: DARATUMUMAB
  49. DARZALEX [Suspect]
     Active Substance: DARATUMUMAB
  50. LENALIDOMIDE [Suspect]
     Active Substance: LENALIDOMIDE
     Indication: Plasma cell myeloma refractory
     Dosage: 10 MILLIGRAM, QD
  51. LENALIDOMIDE [Suspect]
     Active Substance: LENALIDOMIDE
  52. LENALIDOMIDE [Suspect]
     Active Substance: LENALIDOMIDE
     Dosage: 10 MILLIGRAM, BID
     Dates: start: 20240727
  53. LENALIDOMIDE [Suspect]
     Active Substance: LENALIDOMIDE
     Dosage: 25 MILLIGRAM, QD
     Dates: start: 20240810
  54. LENALIDOMIDE [Suspect]
     Active Substance: LENALIDOMIDE
     Dosage: 25 MILLIGRAM, QD
     Dates: start: 20240817
  55. LENALIDOMIDE [Suspect]
     Active Substance: LENALIDOMIDE
     Dosage: 25 MILLIGRAM, QD
     Dates: start: 20240824
  56. LENALIDOMIDE [Suspect]
     Active Substance: LENALIDOMIDE
     Dosage: 25 MILLIGRAM, QD
     Dates: start: 20240831
  57. LENALIDOMIDE [Suspect]
     Active Substance: LENALIDOMIDE
     Dosage: 25 MILLIGRAM, QD
     Dates: start: 20240907
  58. LENALIDOMIDE [Suspect]
     Active Substance: LENALIDOMIDE
     Dosage: 25 MILLIGRAM, QD
     Dates: start: 20240914
  59. LENALIDOMIDE [Suspect]
     Active Substance: LENALIDOMIDE
     Dosage: 25 MILLIGRAM, QD
     Dates: start: 20240928
  60. LENALIDOMIDE [Suspect]
     Active Substance: LENALIDOMIDE
     Dosage: 25 MILLIGRAM, QD
     Dates: start: 20241012
  61. LENALIDOMIDE [Suspect]
     Active Substance: LENALIDOMIDE
     Dosage: 25 MILLIGRAM, QD
     Dates: start: 20241109
  62. LENALIDOMIDE [Suspect]
     Active Substance: LENALIDOMIDE
     Dosage: 25 MILLIGRAM, QD
     Dates: start: 20241207
  63. LENALIDOMIDE [Suspect]
     Active Substance: LENALIDOMIDE
     Dosage: 25 MILLIGRAM, QD
     Dates: start: 20250201
  64. LENALIDOMIDE [Suspect]
     Active Substance: LENALIDOMIDE
     Dosage: 25 MILLIGRAM, QD
     Dates: start: 20250301
  65. LENALIDOMIDE [Suspect]
     Active Substance: LENALIDOMIDE
     Dosage: 10 MILLIGRAM, QD
     Dates: start: 20250416
  66. LENALIDOMIDE [Suspect]
     Active Substance: LENALIDOMIDE
     Dosage: 10 MILLIGRAM, QD
     Dates: start: 20250516
  67. ACYCLOVIR [Concomitant]
     Active Substance: ACYCLOVIR
     Indication: Product used for unknown indication
     Dosage: 400 MILLIGRAM, QD
  68. Septran ds [Concomitant]
     Indication: Product used for unknown indication
     Dosage: UNK, BID
  69. ECOSPIRIN AV 150 [Concomitant]
     Indication: Product used for unknown indication
     Dosage: 75 MILLIGRAM, BID
  70. CALCIUM CARBONATE\CHOLECALCIFEROL [Concomitant]
     Active Substance: CALCIUM CARBONATE\CHOLECALCIFEROL
     Indication: Product used for unknown indication
     Dosage: UNK, BID
  71. PANTOPRAZOLE SODIUM [Concomitant]
     Active Substance: PANTOPRAZOLE SODIUM
     Indication: Product used for unknown indication
     Dosage: UNK, QD
  72. MELPHALAN [Concomitant]
     Active Substance: MELPHALAN
     Indication: Product used for unknown indication
  73. PREDNISOLONE [Concomitant]
     Active Substance: PREDNISOLONE
     Indication: Product used for unknown indication
     Dosage: 40 MILLIGRAM, QD
     Dates: start: 20250315
  74. PREDNISOLONE [Concomitant]
     Active Substance: PREDNISOLONE
     Dosage: 60 MILLIGRAM, QD
     Dates: start: 20250315

REACTIONS (2)
  - White blood cell count decreased [Not Recovered/Not Resolved]
  - Joint stiffness [Not Recovered/Not Resolved]

NARRATIVE: CASE EVENT DATE: 20250516
